FAERS Safety Report 15930819 (Version 2)
Quarter: 2019Q1

REPORT INFORMATION
  Report Type: Report from Study
  Country: US (occurrence: US)
  Receive Date: 20190207
  Receipt Date: 20190215
  Transmission Date: 20190417
  Serious: Yes (Hospitalization, Other)
  Sender: FDA-Public Use
  Company Number: US-GILEAD-2019-0389002

PATIENT
  Age: 37 Year
  Sex: Male

DRUGS (19)
  1. WARFARIN [Concomitant]
     Active Substance: WARFARIN
  2. FUROSEMIDE. [Concomitant]
     Active Substance: FUROSEMIDE
  3. APAP;BUTALBITAL [Concomitant]
  4. SMZ-TMP [Concomitant]
     Active Substance: SULFAMETHOXAZOLE\TRIMETHOPRIM
  5. AMIODARONE [Concomitant]
     Active Substance: AMIODARONE
  6. TRAMADOL HCL [Concomitant]
     Active Substance: TRAMADOL HYDROCHLORIDE
  7. APAP/CODEINE [Concomitant]
     Active Substance: ACETAMINOPHEN\CODEINE PHOSPHATE
  8. ONDANSETRON [Concomitant]
     Active Substance: ONDANSETRON
  9. DOXYCYCLIN [DOXYCYCLINE HYDROCHLORIDE] [Concomitant]
  10. ADCIRCA [Suspect]
     Active Substance: TADALAFIL
     Indication: PULMONARY ARTERIAL HYPERTENSION
     Dosage: 40 MG, QD
     Route: 065
     Dates: start: 20171004
  11. XARELTO [Concomitant]
     Active Substance: RIVAROXABAN
  12. IBUPROFEN. [Concomitant]
     Active Substance: IBUPROFEN
  13. VELETRI [Concomitant]
     Active Substance: EPOPROSTENOL
  14. NEXIUM I.V. [Concomitant]
     Active Substance: ESOMEPRAZOLE SODIUM
  15. NEURONTIN [Concomitant]
     Active Substance: GABAPENTIN
  16. ENALAPRIL [Concomitant]
     Active Substance: ENALAPRIL
  17. AMBRISENTAN [Suspect]
     Active Substance: AMBRISENTAN
     Indication: PULMONARY ARTERIAL HYPERTENSION
     Dosage: 10 MG, QD
     Route: 065
     Dates: start: 20180209
  18. POTASSIUM CHLORIDE. [Concomitant]
     Active Substance: POTASSIUM CHLORIDE
  19. GABAPENTIN. [Concomitant]
     Active Substance: GABAPENTIN

REACTIONS (4)
  - Bite [Unknown]
  - Subcutaneous abscess [Unknown]
  - Intentional dose omission [Unknown]
  - Staphylococcal infection [Unknown]

NARRATIVE: CASE EVENT DATE: 20181027
